FAERS Safety Report 6368487-5 (Version None)
Quarter: 2009Q3

REPORT INFORMATION
  Report Type: 
  Country: None (occurrence: None)
  Receive Date: 20090922
  Receipt Date: 20090915
  Transmission Date: 20100115
  Serious: Yes (Hospitalization)
  Sender: FDA-Public Use
  Company Number: A0808175A

PATIENT
  Age: 54 Year
  Sex: Female

DRUGS (2)
  1. AVANDIA [Suspect]
     Dates: start: 20030101, end: 20050101
  2. AVANDAMET [Suspect]
     Dates: start: 20050101, end: 20050101

REACTIONS (2)
  - DEPRESSION [None]
  - MYOCARDIAL INFARCTION [None]
